FAERS Safety Report 5478984-2 (Version None)
Quarter: 2007Q4

REPORT INFORMATION
  Report Type: 
  Country: None (occurrence: None)
  Receive Date: 20071006
  Receipt Date: 20070924
  Transmission Date: 20080405
  Serious: Yes (Other)
  Sender: FDA-Public Use
  Company Number: GB-PFIZER INC-2007080118

PATIENT
  Age: 40 Year
  Sex: Female
  Weight: 70 kg

DRUGS (4)
  1. VARENICLINE TABLETS [Suspect]
     Indication: SMOKING CESSATION THERAPY
     Route: 048
     Dates: start: 20070630, end: 20070706
  2. ALVERINE CITRATE [Concomitant]
     Route: 048
  3. ISPAGHULA HUSK [Concomitant]
     Route: 048
  4. MOVICOL [Concomitant]
     Route: 048

REACTIONS (3)
  - COMMUNICATION DISORDER [None]
  - HEADACHE [None]
  - TEARFULNESS [None]
